FAERS Safety Report 16072450 (Version 1)
Quarter: 2019Q2

REPORT INFORMATION
  Report Type: Spontaneous
  Country: US (occurrence: US)
  Receive Date: 20190314
  Receipt Date: 20190314
  Transmission Date: 20190711
  Serious: Yes (Hospitalization)
  Sender: FDA-Public Use
  Company Number: None

PATIENT
  Sex: Male

DRUGS (4)
  1. HUMIRA [Suspect]
     Active Substance: ADALIMUMAB
     Indication: COLITIS ULCERATIVE
     Dosage: ?          OTHER FREQUENCY:Q 14 DAYS;?
     Route: 058
     Dates: start: 20170420
  2. ROSUVASTATIN, TAMSULOSIN [Concomitant]
  3. ASPIRIN, LISINOP/HCTZ [Concomitant]
  4. MELOXICAM, METHYLPRED [Concomitant]

REACTIONS (2)
  - Therapy cessation [None]
  - Knee arthroplasty [None]
